FAERS Safety Report 4699870-1 (Version None)
Quarter: 2005Q2

REPORT INFORMATION
  Report Type: 
  Country: None (occurrence: None)
  Receive Date: 20050623
  Receipt Date: 20050610
  Transmission Date: 20051028
  Serious: Yes (Hospitalization, Other)
  Sender: FDA-Public Use
  Company Number: HQWYE351410JUN05

PATIENT
  Age: 91 Year
  Sex: Female

DRUGS (8)
  1. SOMAC                 (PANTOPRAZOLE) [Suspect]
     Indication: DUODENITIS
     Dosage: 80 MG 1X PER 1 DAY;
     Dates: start: 20041008, end: 20041018
  2. SOMAC                 (PANTOPRAZOLE) [Suspect]
     Indication: GASTRITIS
     Dosage: 80 MG 1X PER 1 DAY;
     Dates: start: 20041008, end: 20041018
  3. CALTRATE            600                            (CALCIUM CARBONATE) [Suspect]
     Indication: OSTEOPOROSIS
     Dosage: O=600 MG 1X PER 1 DAY; ORAL
     Route: 048
     Dates: start: 20041008
  4. CARDIZEM CD [Suspect]
     Indication: MYOCARDIAL ISCHAEMIA
     Dosage: 180 MG 1X PER 1 DAY; ORAL
     Route: 048
     Dates: start: 20041005
  5. COVERSYL                     (PERINDOPRIL, ) [Suspect]
     Indication: MYOCARDIAL ISCHAEMIA
     Dosage: 2 MG 1X PER 1 DAY; ORAL
     Route: 048
     Dates: start: 20041008, end: 20041026
  6. SERETIDE              (SALMETEROL/FLUTICASONE) [Concomitant]
  7. ANGININE                  (GLYCERYL TRINITRATE) [Concomitant]
  8. TYLENOL [Concomitant]

REACTIONS (3)
  - HYPERVENTILATION [None]
  - RASH [None]
  - WHEEZING [None]
